FAERS Safety Report 13667372 (Version 2)
Quarter: 2017Q2

REPORT INFORMATION
  Report Type: Report from Study
  Country: DE (occurrence: DE)
  Receive Date: 20170620
  Receipt Date: 20170622
  Transmission Date: 20170830
  Serious: Yes (Hospitalization, Other)
  Sender: FDA-Public Use
  Company Number: DE-BRISTOL-MYERS SQUIBB COMPANY-BMS-2017-053109

PATIENT
  Age: 69 Year
  Sex: Male

DRUGS (6)
  1. TAZOBACTAM [Concomitant]
     Active Substance: TAZOBACTAM
     Indication: SMALL CELL LUNG CANCER
     Dosage: UNK
     Route: 065
     Dates: start: 20170511, end: 20170531
  2. NIVOLUMAB [Suspect]
     Active Substance: NIVOLUMAB
     Indication: SMALL CELL LUNG CANCER
     Dosage: UNK
     Route: 065
  3. ETOPOSIDE. [Suspect]
     Active Substance: ETOPOSIDE
     Indication: SMALL CELL LUNG CANCER
     Dosage: 507 MG, UNK
     Route: 065
     Dates: start: 20170315
  4. CARBOPLATIN. [Suspect]
     Active Substance: CARBOPLATIN
     Indication: SMALL CELL LUNG CANCER
     Dosage: 677 MG, UNK
     Route: 065
     Dates: start: 20170315
  5. PIPERACILLIN [Concomitant]
     Active Substance: PIPERACILLIN
     Indication: SMALL CELL LUNG CANCER
     Dosage: UNK
     Route: 065
     Dates: start: 20170511, end: 20170517
  6. IPILIMUMAB [Suspect]
     Active Substance: IPILIMUMAB
     Indication: SMALL CELL LUNG CANCER
     Dosage: UNK
     Route: 065

REACTIONS (1)
  - Febrile neutropenia [Unknown]

NARRATIVE: CASE EVENT DATE: 20170517
